FAERS Safety Report 9354574 (Version 1)
Quarter: 2013Q2

REPORT INFORMATION
  Report Type: Spontaneous
  Country: CA (occurrence: CA)
  Receive Date: 20130618
  Receipt Date: 20130618
  Transmission Date: 20140414
  Serious: Yes (Other)
  Sender: FDA-Public Use
  Company Number: CA-ROCHE-1237043

PATIENT
  Age: 45 Year
  Sex: Female

DRUGS (3)
  1. XOLAIR [Suspect]
     Indication: ASTHMA
     Route: 058
     Dates: start: 20130114
  2. XOLAIR [Suspect]
     Route: 058
     Dates: start: 20130604
  3. CORTISONE [Concomitant]

REACTIONS (16)
  - Vomiting [Unknown]
  - Abdominal pain upper [Unknown]
  - Eye irritation [Unknown]
  - Burning sensation [Unknown]
  - Oral discomfort [Unknown]
  - Oral discomfort [Unknown]
  - Glossodynia [Unknown]
  - Nasal discomfort [Unknown]
  - Odynophagia [Unknown]
  - Rash [Unknown]
  - Diarrhoea [Unknown]
  - Dizziness [Unknown]
  - Nasal congestion [Unknown]
  - Pain [Unknown]
  - Oropharyngeal pain [Unknown]
  - Headache [Unknown]
